FAERS Safety Report 4376335-8 (Version None)
Quarter: 2004Q2

REPORT INFORMATION
  Report Type: 
  Country: None (occurrence: None)
  Receive Date: 20040603
  Receipt Date: 20031022
  Transmission Date: 20050107
  Serious: Yes (Other)
  Sender: FDA-Public Use
  Company Number: 200319207US

PATIENT
  Sex: Female
  Weight: 69 kg

DRUGS (3)
  1. LOVENOX [Suspect]
     Indication: PROPHYLAXIS
     Dosage: 70 MG Q12H INJ
     Route: 042
     Dates: end: 20031013
  2. LOVENOX [Suspect]
     Indication: PULMONARY EMBOLISM
     Dosage: 70 MG Q12H INJ
     Route: 042
     Dates: end: 20031013
  3. WARFARIN SODIUM [Concomitant]

REACTIONS (4)
  - HAEMOGLOBIN DECREASED [None]
  - INTRA-ABDOMINAL HAEMORRHAGE [None]
  - PALLOR [None]
  - THROMBOSIS [None]
